FAERS Safety Report 8119925-9 (Version None)
Quarter: 2012Q1

REPORT INFORMATION
  Report Type: 
  Country: None (occurrence: None)
  Receive Date: 20120203
  Receipt Date: 20120120
  Transmission Date: 20120608
  Serious: Yes (Hospitalization, Other)
  Sender: FDA-Public Use
  Company Number: JPI-P-006085

PATIENT
  Age: 45 Year
  Sex: Female
  Weight: 56.6996 kg

DRUGS (7)
  1. NORTRIPTYLINE HYDROCHLORIDE [Concomitant]
  2. OXYCODONE HYDROCHLORIDE [Concomitant]
  3. ONDANSETRON [Concomitant]
  4. LEVOTHYROXINE SODIUM [Concomitant]
  5. XYREM [Suspect]
     Indication: CATAPLEXY
     Dosage: 4.5 GM (2.25 GM, 2 IN 1 D), ORAL, 9 GM (4.5 GM, 2 IN 1 D), ORAL
     Route: 048
     Dates: start: 20050413, end: 20061128
  6. XYREM [Suspect]
     Indication: CATAPLEXY
     Dosage: 4.5 GM (2.25 GM, 2 IN 1 D), ORAL, 9 GM (4.5 GM, 2 IN 1 D), ORAL
     Route: 048
     Dates: start: 20061129
  7. ALPRAZOLAM [Concomitant]

REACTIONS (4)
  - BLOOD PRESSURE INCREASED [None]
  - NAUSEA [None]
  - PANCREATITIS CHRONIC [None]
  - HEADACHE [None]
